FAERS Safety Report 25931456 (Version 1)
Quarter: 2025Q4

REPORT INFORMATION
  Report Type: Spontaneous
  Country: US (occurrence: None)
  Receive Date: 20251016
  Receipt Date: 20251016
  Transmission Date: 20260118
  Serious: Yes (Disabling)
  Sender: FDA-CTU
  Company Number: None

PATIENT
  Age: 28 Year
  Sex: Male
  Weight: 67.5 kg

DRUGS (1)
  1. CANNABIS SATIVA SUBSP. INDICA FLOWER BUD [Suspect]
     Active Substance: CANNABIS SATIVA SUBSP. INDICA FLOWER BUD

REACTIONS (2)
  - Heart rate increased [None]
  - Irritability [None]

NARRATIVE: CASE EVENT DATE: 20251014
